FAERS Safety Report 22587799 (Version 1)
Quarter: 2023Q2

REPORT INFORMATION
  Report Type: Spontaneous
  Country: US (occurrence: US)
  Receive Date: 20230612
  Receipt Date: 20230612
  Transmission Date: 20230721
  Serious: No
  Sender: FDA-Public Use
  Company Number: US-AMGEN-USASP2023096807

PATIENT
  Sex: Female

DRUGS (1)
  1. REPATHA [Suspect]
     Active Substance: EVOLOCUMAB
     Indication: Low density lipoprotein abnormal
     Route: 058

REACTIONS (5)
  - Pruritus [Unknown]
  - Swelling [Unknown]
  - Erythema [Unknown]
  - Skin discolouration [Not Recovered/Not Resolved]
  - Feeling hot [Unknown]
